FAERS Safety Report 14757744 (Version 4)
Quarter: 2018Q4

REPORT INFORMATION
  Report Type: Spontaneous
  Country: NL (occurrence: NL)
  Receive Date: 20180413
  Receipt Date: 20181101
  Transmission Date: 20190204
  Serious: Yes (Hospitalization, Other)
  Sender: FDA-Public Use
  Company Number: PHHY2017NL108361

PATIENT
  Age: 51 Year
  Sex: Female
  Weight: 86 kg

DRUGS (6)
  1. 6-METHYLMERCAPTOPURINE [Suspect]
     Active Substance: MERCAPTOPURINE
     Indication: IMMUNOSUPPRESSANT DRUG THERAPY
     Dosage: 100 MG, QD (1.3 MG/ KG))
     Route: 065
  2. AZATHIOPRINE. [Suspect]
     Active Substance: AZATHIOPRINE
     Indication: COLITIS ULCERATIVE
     Dosage: 150 MG, UNK
     Route: 065
  3. MESALAZINE [Suspect]
     Active Substance: MESALAMINE
     Indication: COLITIS ULCERATIVE
     Dosage: 2G/30ML UNK
     Route: 054
  4. ALLOPURINOL. [Suspect]
     Active Substance: ALLOPURINOL
     Indication: HYPERURICAEMIA
     Dosage: 100 MG, UNK
     Route: 065
  5. 6-METHYLMERCAPTOPURINE [Suspect]
     Active Substance: MERCAPTOPURINE
     Indication: COLITIS ULCERATIVE
     Dosage: 50 MG, QD
     Route: 065
  6. ALLOPURINOL. [Suspect]
     Active Substance: ALLOPURINOL
     Indication: COLITIS ULCERATIVE

REACTIONS (9)
  - Anaemia [Recovering/Resolving]
  - Condition aggravated [Unknown]
  - Off label use [Unknown]
  - Irritable bowel syndrome [Unknown]
  - Bone marrow failure [Unknown]
  - Pyrexia [Unknown]
  - Thrombocytopenia [Not Recovered/Not Resolved]
  - Inflammatory bowel disease [Unknown]
  - Leukopenia [Recovered/Resolved]
